FAERS Safety Report 8352286-9 (Version None)
Quarter: 2012Q2

REPORT INFORMATION
  Report Type: 
  Country: None (occurrence: None)
  Receive Date: 20120511
  Receipt Date: 20120504
  Transmission Date: 20120825
  Serious: Yes (Life-Threatening)
  Sender: FDA-Public Use
  Company Number: BR-ACCORD-013422

PATIENT
  Age: 31 Year
  Sex: Female
  Weight: 44.7 kg

DRUGS (8)
  1. MORPHINE [Concomitant]
  2. FILGRASTIM [Concomitant]
     Indication: CHEMOTHERAPY
     Dates: start: 20111213, end: 20120320
  3. ONDANSETRON [Concomitant]
     Indication: CHEMOTHERAPY
     Route: 042
     Dates: start: 20111205, end: 20120315
  4. CAPTOPRIL [Concomitant]
  5. DOCETAXEL [Suspect]
     Indication: CHEMOTHERAPY
     Route: 042
     Dates: start: 20111212, end: 20120315
  6. GEMCITABINE [Suspect]
     Indication: MALIGNANT NEOPLASM OF CONJUNCTIVA
     Route: 042
     Dates: start: 20111212, end: 20120315
  7. DEXAMETHASONE [Concomitant]
     Indication: CHEMOTHERAPY
     Route: 042
     Dates: start: 20111205
  8. HYDROCORTISONE [Concomitant]
     Route: 042

REACTIONS (1)
  - ADVERSE DRUG REACTION [None]
